FAERS Safety Report 4972484-1 (Version None)
Quarter: 2006Q2

REPORT INFORMATION
  Report Type: 
  Country: None (occurrence: None)
  Receive Date: 20060413
  Receipt Date: 20051114
  Transmission Date: 20061013
  Serious: Yes (Hospitalization, Disabling)
  Sender: FDA-Public Use
  Company Number: US-MERCK-0511USA02766

PATIENT
  Age: 56 Year
  Sex: Male
  Weight: 77 kg

DRUGS (2)
  1. VIOXX [Suspect]
     Indication: ARTHROPATHY
     Route: 048
     Dates: start: 20030805, end: 20030901
  2. VIOXX [Suspect]
     Indication: PAIN
     Route: 048
     Dates: start: 20030805, end: 20030901

REACTIONS (6)
  - ANXIETY [None]
  - BUTTOCK PAIN [None]
  - OSTEOARTHRITIS [None]
  - PAIN [None]
  - SKIN LESION [None]
  - THROMBOSIS [None]
